FAERS Safety Report 6465440-8 (Version None)
Quarter: 2009Q4

REPORT INFORMATION
  Report Type: 
  Country: None (occurrence: None)
  Receive Date: 20091201
  Receipt Date: 20091125
  Transmission Date: 20100525
  Serious: Yes (Hospitalization)
  Sender: FDA-Public Use
  Company Number: US-B.I. PHARMACEUTICALS,INC./RIDGEFIELD-2009-BP-07779BP

PATIENT
  Sex: Female

DRUGS (17)
  1. SPIRIVA [Suspect]
     Indication: CHRONIC OBSTRUCTIVE PULMONARY DISEASE
     Dosage: 18 MCG
     Route: 055
     Dates: start: 20040601
  2. LISINOPRIL [Concomitant]
     Indication: BLOOD PRESSURE
     Dates: start: 20080101
  3. B COMPLEX ELX [Concomitant]
     Indication: CARDIOVASCULAR DISORDER
  4. ALBUTEROL [Concomitant]
  5. ZOCOR [Concomitant]
     Indication: BLOOD CHOLESTEROL INCREASED
  6. RANITIDINE [Concomitant]
     Indication: GASTROINTESTINAL DISORDER
  7. PREVACID [Concomitant]
     Indication: GASTROINTESTINAL DISORDER
  8. PROVENTIL [Concomitant]
     Indication: LUNG DISORDER
  9. ALLEGRA [Concomitant]
     Indication: HYPERSENSITIVITY
  10. ZETIA [Concomitant]
     Indication: BLOOD CHOLESTEROL INCREASED
  11. LIDOCAINE [Concomitant]
     Indication: HAEMORRHOIDS
  12. COUMADIN [Concomitant]
     Indication: ANTICOAGULANT THERAPY
  13. TRICOR [Concomitant]
     Indication: BLOOD CHOLESTEROL INCREASED
  14. PULMICORT [Concomitant]
     Indication: LUNG DISORDER
  15. NITROGLYCERIN [Concomitant]
     Indication: CARDIAC DISORDER
  16. FENTANYL-50 [Concomitant]
     Indication: PAIN
  17. DIAZEPAM [Concomitant]
     Indication: PAIN

REACTIONS (10)
  - ANXIETY [None]
  - ARTERIAL OCCLUSIVE DISEASE [None]
  - CHEST PAIN [None]
  - CORONARY ARTERY OCCLUSION [None]
  - DEHYDRATION [None]
  - DIARRHOEA [None]
  - DYSPNOEA [None]
  - HEADACHE [None]
  - HERNIA [None]
  - TRANSIENT ISCHAEMIC ATTACK [None]
